FAERS Safety Report 12619188 (Version 4)
Quarter: 2016Q3

REPORT INFORMATION
  Report Type: Spontaneous
  Country: FI (occurrence: FI)
  Receive Date: 20160803
  Receipt Date: 20160831
  Transmission Date: 20161109
  Serious: Yes (Hospitalization, Other)
  Sender: FDA-Public Use
  Company Number: FI-GILEAD-2016-0225506

PATIENT
  Age: 58 Year
  Sex: Male

DRUGS (3)
  1. NEXIUM [Concomitant]
     Active Substance: ESOMEPRAZOLE MAGNESIUM
     Dosage: 40 MG, QD
     Dates: start: 20160512, end: 20160627
  2. ZYDELIG [Suspect]
     Active Substance: IDELALISIB
     Indication: CHRONIC LYMPHOCYTIC LEUKAEMIA
     Dosage: 200 MG, QD
     Route: 048
     Dates: start: 20150720, end: 20160622
  3. ZYDELIG [Suspect]
     Active Substance: IDELALISIB
     Indication: B-CELL SMALL LYMPHOCYTIC LYMPHOMA

REACTIONS (9)
  - Lymphadenopathy [Recovered/Resolved]
  - Pyrexia [Unknown]
  - Dehydration [Unknown]
  - Off label use [Recovered/Resolved]
  - Splenic infarction [Recovered/Resolved]
  - Weight decreased [Unknown]
  - Colitis [Recovered/Resolved]
  - Hypoacusis [Unknown]
  - Cough [Recovered/Resolved]

NARRATIVE: CASE EVENT DATE: 20150720
